FAERS Safety Report 8140714-3 (Version None)
Quarter: 2012Q1

REPORT INFORMATION
  Report Type: 
  Country: None (occurrence: None)
  Receive Date: 20120216
  Receipt Date: 20120208
  Transmission Date: 20120608
  Serious: Yes (Other)
  Sender: FDA-Public Use
  Company Number: US-AMGEN-USASP2012009130

PATIENT
  Age: 64 Year
  Sex: Male

DRUGS (2)
  1. PROCRIT [Suspect]
     Dosage: 60000 IU, QWK
     Dates: end: 20100413
  2. PROCRIT [Suspect]
     Indication: REFRACTORY CYTOPENIA WITH MULTILINEAGE DYSPLASIA
     Dosage: UNK UNK, QWK
     Dates: start: 20090901

REACTIONS (2)
  - THERAPEUTIC RESPONSE DECREASED [None]
  - APLASIA PURE RED CELL [None]
